FAERS Safety Report 7067901 (Version 2)
Quarter: 2014Q3

REPORT INFORMATION
  Report Type: Spontaneous
  Country: US (occurrence: None)
  Receive Date: 20090723
  Receipt Date: 20140723
  Transmission Date: 20150326
  Serious: Yes (Hospitalization, Other)
  Sender: FDA-Public Use
  Company Number: 2009S1005524

PATIENT
  Age: 60 Year
  Sex: Male

DRUGS (1)
  1. PHOSPHO-SODA [Suspect]
     Active Substance: SODIUM PHOSPHATE, DIBASIC\SODIUM PHOSPHATE, MONOBASIC
     Indication: COLONOSCOPY
     Dates: start: 20070724

REACTIONS (9)
  - Hydronephrosis [None]
  - Decreased appetite [None]
  - Hydroureter [None]
  - Calculus urethral [None]
  - Renal failure chronic [None]
  - Cholecystectomy [None]
  - Blood creatinine increased [None]
  - Nephrolithiasis [None]
  - Umbilical hernia repair [None]

NARRATIVE: CASE EVENT DATE: 20090414
